FAERS Safety Report 5023073-4 (Version None)
Quarter: 2006Q2

REPORT INFORMATION
  Report Type: 
  Country: None (occurrence: None)
  Receive Date: 20060502
  Receipt Date: 20050531
  Transmission Date: 20061013
  Serious: Yes (Other)
  Sender: FDA-Public Use
  Company Number: PHEH2005US05509

PATIENT
  Age: 65 Year
  Sex: Male
  Weight: 86.2 kg

DRUGS (7)
  1. LOTREL [Suspect]
     Indication: HYPERTENSION
     Dosage: 5 MG AML/10 MG BEN, QD ORAL
     Route: 048
     Dates: end: 20050513
  2. GLYBURIDE [Concomitant]
  3. METOPROLOL (METOPROLOL) [Concomitant]
  4. METFORMIN [Concomitant]
  5. ASPIRIN [Concomitant]
  6. LIPITOR [Concomitant]
  7. HYTRIN [Concomitant]

REACTIONS (5)
  - ANGIONEUROTIC OEDEMA [None]
  - GLOSSODYNIA [None]
  - OBSTRUCTIVE AIRWAYS DISORDER [None]
  - PARAESTHESIA ORAL [None]
  - SWOLLEN TONGUE [None]
